FAERS Safety Report 21964858 (Version 5)
Quarter: 2025Q2

REPORT INFORMATION
  Report Type: Report from Study
  Country: JP (occurrence: JP)
  Receive Date: 20230207
  Receipt Date: 20250423
  Transmission Date: 20250717
  Serious: Yes (Hospitalization)
  Sender: SANOFI AVENTIS
  Company Number: JP-SA-2022SA272392

PATIENT
  Age: 48 Year
  Sex: Male
  Weight: 71.5 kg

DRUGS (9)
  1. DUPILUMAB [Suspect]
     Active Substance: DUPILUMAB
     Indication: Dermatitis atopic
     Dosage: 300 MG, QOW
     Route: 058
     Dates: start: 20220421
  2. DUPILUMAB [Suspect]
     Active Substance: DUPILUMAB
     Route: 058
     Dates: start: 20220407, end: 20220407
  3. OLOPATADINE HYDROCHLORIDE [Concomitant]
     Active Substance: OLOPATADINE HYDROCHLORIDE
     Indication: Dermatitis atopic
     Route: 048
     Dates: start: 20210428
  4. LORATADINE [Concomitant]
     Active Substance: LORATADINE
     Indication: Dermatitis atopic
     Route: 048
     Dates: start: 20210428
  5. DELGOCITINIB [Concomitant]
     Active Substance: DELGOCITINIB
     Indication: Dermatitis atopic
     Route: 003
     Dates: start: 20210428, end: 20230111
  6. DIFLORASONE DIACETATE [Concomitant]
     Active Substance: DIFLORASONE DIACETATE
     Indication: Dermatitis atopic
     Route: 003
     Dates: start: 20210428
  7. PETROLATUM [Concomitant]
     Active Substance: PETROLATUM
     Indication: Dermatitis atopic
     Route: 003
     Dates: start: 20210428
  8. BETAMETHASONE DIPROPIONATE [Concomitant]
     Active Substance: BETAMETHASONE DIPROPIONATE
     Indication: Dermatitis atopic
     Route: 003
     Dates: start: 20210819, end: 20230111
  9. DEXAMETHASONE DIPROPIONATE [Concomitant]
     Active Substance: DEXAMETHASONE DIPROPIONATE
     Indication: Dermatitis atopic
     Route: 003
     Dates: start: 20210819, end: 20230111

REACTIONS (4)
  - Myelitis [Not Recovered/Not Resolved]
  - Myelitis [Not Recovered/Not Resolved]
  - Conjunctivitis [Recovered/Resolved]
  - Conjunctivitis allergic [Unknown]

NARRATIVE: CASE EVENT DATE: 20220706
